FAERS Safety Report 5830842-7 (Version None)
Quarter: 2008Q3

REPORT INFORMATION
  Report Type: 
  Country: None (occurrence: None)
  Receive Date: 20080801
  Receipt Date: 20071226
  Transmission Date: 20090109
  Serious: No
  Sender: FDA-Public Use
  Company Number: US-BRISTOL-MYERS SQUIBB COMPANY-14025274

PATIENT
  Age: 79 Year
  Sex: Female
  Weight: 60 kg

DRUGS (6)
  1. COUMADIN [Suspect]
     Indication: ATRIAL FIBRILLATION
     Dosage: 2.5MG 2DAYS
  2. CALCIUM + VITAMIN D [Concomitant]
  3. LANOXIN [Concomitant]
  4. NORVASC [Concomitant]
  5. TOPROL-XL [Concomitant]
  6. LOVENOX [Concomitant]

REACTIONS (3)
  - BACK PAIN [None]
  - BLOOD PRESSURE INCREASED [None]
  - FEELING HOT [None]
